FAERS Safety Report 17219695 (Version 1)
Quarter: 2019Q4

REPORT INFORMATION
  Report Type: Spontaneous
  Country: US (occurrence: US)
  Receive Date: 20191231
  Receipt Date: 20191231
  Transmission Date: 20200122
  Serious: No
  Sender: FDA-Public Use
  Company Number: US-CELGENEUS-USA-20191208619

PATIENT
  Sex: Female

DRUGS (1)
  1. OTEZLA [Suspect]
     Active Substance: APREMILAST
     Indication: DRUG THERAPY
     Dosage: 60 MILLIGRAM (WITH FOOD AND WATER)
     Route: 048

REACTIONS (1)
  - Drug ineffective [Unknown]
